FAERS Safety Report 8506439 (Version 2)
Quarter: 2012Q4

REPORT INFORMATION
  Report Type: 
  Country: US (occurrence: US)
  Receive Date: 20120412
  Receipt Date: 20121009
  Transmission Date: 20130627
  Serious: No
  Sender: FDA-Public Use
  Company Number: US-PFIZER INC-2012089205

PATIENT
  Age: 47 Year
  Sex: Female
  Weight: 68.03 kg

DRUGS (4)
  1. LYRICA [Suspect]
     Indication: BACK PAIN
     Dosage: 50 mg, 3x/day
     Dates: start: 20120408
  2. GABAPENTIN [Suspect]
     Indication: HYPOAESTHESIA
     Dosage: 300 mg, 2x/day
  3. GABAPENTIN [Suspect]
     Indication: PARAESTHESIA
  4. PRAVASTATIN [Concomitant]
     Indication: BLOOD CHOLESTEROL INCREASED
     Dosage: 10 mg, daily

REACTIONS (9)
  - Headache [Unknown]
  - Dizziness [Unknown]
  - Malaise [Unknown]
  - Dysarthria [Unknown]
  - Asthenia [Unknown]
  - Frustration [Unknown]
  - Somnolence [Unknown]
  - Drug intolerance [Unknown]
  - Feeling abnormal [Unknown]
